FAERS Safety Report 7020272-7 (Version None)
Quarter: 2010Q3

REPORT INFORMATION
  Report Type: 
  Country: None (occurrence: None)
  Receive Date: 20100927
  Receipt Date: 20100915
  Transmission Date: 20110219
  Serious: Yes (Hospitalization)
  Sender: FDA-Public Use
  Company Number: DSU-2010-04682

PATIENT
  Age: 70 Year
  Sex: Female
  Weight: 53.0709 kg

DRUGS (6)
  1. BENICAR HCT [Suspect]
     Indication: HYPERTENSION
     Dosage: 40/??MG (QD), PER ORAL; 40/??MG (ONE DAY ONLY), PER ORAL
     Route: 048
     Dates: start: 20080101, end: 20100401
  2. BENICAR HCT [Suspect]
     Indication: HYPERTENSION
     Dosage: 40/??MG (QD), PER ORAL; 40/??MG (ONE DAY ONLY), PER ORAL
     Route: 048
     Dates: start: 20100901, end: 20100901
  3. PREMARIN (ESTROGENS CONJUGATED) (ESTROGENS CONJUGATED) [Concomitant]
  4. AMBIEN CR [Concomitant]
  5. VITAMINS (OTHER PLAIN VIRTAMIN PREPARATIONS) [Concomitant]
  6. CALCIUM (CALCIUM) (CALCIUM) [Concomitant]

REACTIONS (1)
  - COELIAC DISEASE [None]
